FAERS Safety Report 7118451-3 (Version None)
Quarter: 2010Q4

REPORT INFORMATION
  Report Type: 
  Country: None (occurrence: None)
  Receive Date: 20101123
  Receipt Date: 20101115
  Transmission Date: 20110411
  Serious: Yes (Death)
  Sender: FDA-Public Use
  Company Number: FR-ALEXION PHARMACEUTICALS INC.-A201001486

PATIENT
  Sex: Female

DRUGS (1)
  1. SOLIRIS [Suspect]
     Indication: THROMBOTIC MICROANGIOPATHY
     Dosage: UNK
     Route: 042
     Dates: start: 20101027, end: 20101027

REACTIONS (1)
  - CARDIAC FAILURE [None]
